FAERS Safety Report 12476180 (Version 8)
Quarter: 2017Q3

REPORT INFORMATION
  Report Type: Report from Study
  Country: US (occurrence: US)
  Receive Date: 20160617
  Receipt Date: 20170921
  Transmission Date: 20171127
  Serious: Yes (Hospitalization)
  Sender: FDA-Public Use
  Company Number: PHEH2016US015111

PATIENT
  Sex: Female

DRUGS (2)
  1. ENTRESTO [Suspect]
     Active Substance: SACUBITRIL\VALSARTAN
     Indication: CARDIAC FAILURE CHRONIC
     Route: 065
  2. ISOSORBIDE. [Concomitant]
     Active Substance: ISOSORBIDE
     Indication: PRODUCT USED FOR UNKNOWN INDICATION
     Route: 065

REACTIONS (10)
  - Gastrooesophageal reflux disease [Unknown]
  - Urinary tract infection [Unknown]
  - Asthenia [Unknown]
  - Blood pressure decreased [Unknown]
  - Pruritus [Unknown]
  - Cough [Unknown]
  - Drug ineffective [Unknown]
  - Loss of consciousness [Unknown]
  - Dizziness [Unknown]
  - Fatigue [Unknown]
